FAERS Safety Report 18491747 (Version 3)
Quarter: 2021Q1

REPORT INFORMATION
  Report Type: Spontaneous
  Country: JP (occurrence: JP)
  Receive Date: 20201111
  Receipt Date: 20210325
  Transmission Date: 20210419
  Serious: Yes (Death, Other)
  Sender: FDA-Public Use
  Company Number: JP-ELI_LILLY_AND_COMPANY-JP202011002525

PATIENT
  Age: 69 Year
  Sex: Male
  Weight: 68 kg

DRUGS (9)
  1. CYRAMZA [Suspect]
     Active Substance: RAMUCIRUMAB
     Indication: LUNG ADENOCARCINOMA STAGE IV
     Dosage: 664 MG, CYCLICAL
     Route: 041
     Dates: start: 20191108, end: 20200420
  2. DOCETAXEL. [Suspect]
     Active Substance: DOCETAXEL
     Indication: LUNG ADENOCARCINOMA STAGE IV
     Dosage: 100 MG, CYCLICAL
     Route: 041
     Dates: start: 20191108, end: 20200420
  3. VOGLIBOSE [Concomitant]
     Active Substance: VOGLIBOSE
  4. REBAMIPIDE [Concomitant]
     Active Substance: REBAMIPIDE
  5. TAKECAB [Concomitant]
     Active Substance: VONOPRAZAN FUMARATE
     Dosage: 20 MG, DAILY
     Route: 048
     Dates: start: 20181123, end: 20201016
  6. CAMOSTAT MESILATE [Concomitant]
     Active Substance: CAMOSTAT MESYLATE
  7. FUROSEMIDE. [Concomitant]
     Active Substance: FUROSEMIDE
     Indication: OEDEMA
     Dosage: 40 MG, DAILY
     Route: 048
     Dates: start: 20200406, end: 20201017
  8. POLAPREZINC [Concomitant]
     Active Substance: POLAPREZINC
  9. LOXOPROFEN [Concomitant]
     Active Substance: LOXOPROFEN
     Indication: PAIN MANAGEMENT
     Dosage: 180 MG, DAILY
     Route: 048
     Dates: start: 20180928, end: 20201016

REACTIONS (3)
  - Interstitial lung disease [Fatal]
  - Septic shock [Unknown]
  - Pneumothorax [Unknown]

NARRATIVE: CASE EVENT DATE: 20200511
